FAERS Safety Report 15966388 (Version 1)
Quarter: 2019Q1

REPORT INFORMATION
  Report Type: Spontaneous
  Country: US (occurrence: US)
  Receive Date: 20190214
  Receipt Date: 20190214
  Transmission Date: 20190418
  Serious: Yes (Disabling)
  Sender: FDA-Public Use
  Company Number: None

PATIENT
  Age: 34 Year
  Sex: Female
  Weight: 67.05 kg

DRUGS (2)
  1. SENNA [Concomitant]
     Active Substance: SENNA LEAF\SENNOSIDES\SENNOSIDES A AND B
  2. DIAMOX SEQUELS [Suspect]
     Active Substance: ACETAZOLAMIDE
     Indication: HYPOBARISM
     Dosage: ?          QUANTITY:15 TABLET(S);?
     Route: 048
     Dates: start: 20190212, end: 20190213

REACTIONS (5)
  - Nausea [None]
  - Vision blurred [None]
  - Diplopia [None]
  - Visual impairment [None]
  - Headache [None]

NARRATIVE: CASE EVENT DATE: 20190213
